FAERS Safety Report 23101337 (Version 2)
Quarter: 2023Q4

REPORT INFORMATION
  Report Type: Report from Study
  Country: US (occurrence: US)
  Receive Date: 20231024
  Receipt Date: 20231130
  Transmission Date: 20240110
  Serious: Yes (Death, Hospitalization, Other)
  Sender: FDA-Public Use
  Company Number: US-SEATTLE GENETICS-2023SGN11300

PATIENT
  Sex: Male

DRUGS (1)
  1. TUCATINIB [Suspect]
     Active Substance: TUCATINIB
     Indication: Rectal cancer
     Route: 065

REACTIONS (11)
  - Death [Fatal]
  - Haemoglobin decreased [Unknown]
  - Anaemia [Unknown]
  - Hepatic vascular thrombosis [Unknown]
  - Fluid retention [Unknown]
  - Gastric ulcer [Unknown]
  - Asthenia [Unknown]
  - Liver disorder [Unknown]
  - Yellow skin [Unknown]
  - Constipation [Unknown]
  - Blood potassium decreased [Unknown]
